FAERS Safety Report 20592146 (Version 1)
Quarter: 2022Q1

REPORT INFORMATION
  Report Type: Spontaneous
  Country: US (occurrence: None)
  Receive Date: 20220314
  Receipt Date: 20220314
  Transmission Date: 20220424
  Serious: No
  Sender: FDA-Public Use
  Company Number: US-ROCHE-2753597

PATIENT
  Sex: Female

DRUGS (1)
  1. XOLAIR [Suspect]
     Active Substance: OMALIZUMAB
     Indication: Ill-defined disorder
     Dosage: VIAL
     Route: 058
     Dates: start: 20191010

REACTIONS (3)
  - Sinusitis [Unknown]
  - Intentional product use issue [Unknown]
  - Off label use [Unknown]
